FAERS Safety Report 7201910-2 (Version None)
Quarter: 2010Q4

REPORT INFORMATION
  Report Type: 
  Country: None (occurrence: None)
  Receive Date: 20101229
  Receipt Date: 20101228
  Transmission Date: 20110411
  Serious: Yes (Death)
  Sender: FDA-Public Use
  Company Number: CN-PFIZER INC-2010178838

PATIENT
  Age: 11 Year
  Sex: Male

DRUGS (3)
  1. CEFOPERAZONE SODIUM [Suspect]
     Dosage: 3 MG, SINGLE
     Route: 041
     Dates: start: 20050626, end: 20050626
  2. CEFTRIAXONE [Concomitant]
     Indication: ASTHMA
     Dosage: UNK
     Dates: start: 20050624
  3. DEXAMETHASONE [Concomitant]
     Dosage: 5 MG, SINGLE
     Route: 041
     Dates: start: 20050626, end: 20050626

REACTIONS (3)
  - ANAPHYLACTIC SHOCK [None]
  - CARDIAC ARREST [None]
  - RESPIRATORY ARREST [None]
